FAERS Safety Report 15691098 (Version 1)
Quarter: 2018Q4

REPORT INFORMATION
  Report Type: Spontaneous
  Country: EC (occurrence: EC)
  Receive Date: 20181205
  Receipt Date: 20181205
  Transmission Date: 20190205
  Serious: Yes (Other)
  Sender: FDA-Public Use
  Company Number: EC-BAYER-2018-221908

PATIENT
  Sex: Male

DRUGS (1)
  1. CLOTRIMAZOLE (TOPICAL) [Suspect]
     Active Substance: CLOTRIMAZOLE
     Indication: PENILE INFECTION
     Dosage: 1 DF, BID
     Dates: start: 20181111, end: 20181118

REACTIONS (5)
  - Blister [Unknown]
  - Drug hypersensitivity [Unknown]
  - Skin haemorrhage [Unknown]
  - Skin irritation [Unknown]
  - Skin ulcer [Unknown]
